FAERS Safety Report 6716406-1 (Version None)
Quarter: 2010Q2

REPORT INFORMATION
  Report Type: 
  Country: None (occurrence: None)
  Receive Date: 20100507
  Receipt Date: 20100426
  Transmission Date: 20101027
  Serious: Yes (Hospitalization)
  Sender: FDA-Public Use
  Company Number: CA-GENENTECH-301224

PATIENT
  Sex: Female
  Weight: 65.8 kg

DRUGS (14)
  1. RITUXIMAB [Suspect]
     Indication: RHEUMATOID ARTHRITIS
     Dosage: 1000 MG, Q14D
     Route: 042
     Dates: start: 20081023
  2. COUMADIN [Concomitant]
     Indication: DRUG USE FOR UNKNOWN INDICATION
     Dosage: UNK
  3. PREDNISONE [Concomitant]
     Indication: BLOOD PRESSURE
     Dosage: UNK
  4. NORVASC [Concomitant]
     Indication: BLOOD PRESSURE
     Dosage: UNK
  5. LOSEC I.V. [Concomitant]
     Indication: DRUG USE FOR UNKNOWN INDICATION
     Dosage: UNK
  6. DIOVAN [Concomitant]
     Indication: BLOOD PRESSURE
     Dosage: UNK
  7. SPIRONOLACTONE [Concomitant]
     Indication: BLOOD PRESSURE
     Dosage: UNK
  8. FOSAMAX [Concomitant]
     Indication: DRUG USE FOR UNKNOWN INDICATION
     Dosage: UNK
  9. BROMAZEPAM [Concomitant]
     Indication: DRUG USE FOR UNKNOWN INDICATION
     Dosage: UNK
  10. VITAMINE D [Concomitant]
     Indication: DRUG USE FOR UNKNOWN INDICATION
     Dosage: UNK
  11. METOPROLOL [Concomitant]
     Indication: BLOOD PRESSURE
     Dosage: UNK
  12. DIPHENHYDRAMINE [Concomitant]
     Indication: PREMEDICATION
     Dosage: 50 MG, UNK
     Route: 048
     Dates: start: 20100414, end: 20100414
  13. ACETAMINOPHEN [Concomitant]
     Indication: PREMEDICATION
     Dosage: 650 MG, UNK
     Route: 048
     Dates: start: 20100414, end: 20100414
  14. METHYLPREDNISOLONE 4MG TAB [Concomitant]
     Indication: PREMEDICATION
     Dosage: 100 MG, UNK
     Route: 042
     Dates: start: 20100414, end: 20100414

REACTIONS (2)
  - INTESTINAL OBSTRUCTION [None]
  - PALPITATIONS [None]
